FAERS Safety Report 6418596-7 (Version None)
Quarter: 2009Q4

REPORT INFORMATION
  Report Type: 
  Country: None (occurrence: None)
  Receive Date: 20091028
  Receipt Date: 20091015
  Transmission Date: 20100525
  Serious: Yes (Hospitalization)
  Sender: FDA-Public Use
  Company Number: PHHY2009JP45082

PATIENT
  Sex: Male

DRUGS (2)
  1. STI571/CGP57148B T35717+TAB [Suspect]
     Indication: ACUTE LYMPHOCYTIC LEUKAEMIA
     Dosage: 800 MG/DAY
     Route: 048
     Dates: start: 20071214, end: 20081207
  2. FUROSEMIDE [Concomitant]
     Dosage: 20 MG, UNK
     Route: 048
     Dates: start: 20080614, end: 20081029

REACTIONS (1)
  - INTERSTITIAL LUNG DISEASE [None]
